FAERS Safety Report 6699095-4 (Version None)
Quarter: 2010Q2

REPORT INFORMATION
  Report Type: 
  Country: None (occurrence: None)
  Receive Date: 20100427
  Receipt Date: 20100421
  Transmission Date: 20101027
  Serious: Yes (Hospitalization)
  Sender: FDA-Public Use
  Company Number: IT-ASTRAZENECA-2010SE17751

PATIENT
  Age: 38 Year
  Sex: Female

DRUGS (6)
  1. SEROQUEL [Suspect]
     Indication: SCHIZOPHRENIA
     Dosage: 300 MG + 200 MG + 200 MG DAILY
     Route: 048
     Dates: start: 20081118
  2. SEROQUEL [Suspect]
     Dosage: 300 MG + 300 MG + 300 MG DAILY
     Route: 048
     Dates: start: 20090601
  3. SEROQUEL [Suspect]
     Dosage: 300 MG + 300 MG + 300 MG + 100 MG DAILY
     Route: 048
     Dates: start: 20090701, end: 20090715
  4. DEPAKENE [Concomitant]
     Route: 048
  5. EN [Concomitant]
     Route: 048
  6. ENTUMIN [Concomitant]
     Route: 048

REACTIONS (1)
  - METRORRHAGIA [None]
